FAERS Safety Report 19610257 (Version 1)
Quarter: 2021Q3

REPORT INFORMATION
  Report Type: Spontaneous
  Country: GB (occurrence: GB)
  Receive Date: 20210726
  Receipt Date: 20210726
  Transmission Date: 20211014
  Serious: Yes (Life-Threatening, Hospitalization, Disabling, Other)
  Sender: FDA-Public Use
  Company Number: GB-MYLANLABS-2021M1045024

PATIENT
  Age: 54 Year
  Sex: Male
  Weight: 90.71 kg

DRUGS (11)
  1. AZATHIOPRINE. [Concomitant]
     Active Substance: AZATHIOPRINE
     Dosage: UNK UNK, QID (4 EVERY DAY)
     Dates: start: 20180416
  2. PRIADEL                            /00033702/ [Concomitant]
     Active Substance: LITHIUM CARBONATE
     Dosage: (THREE  EVERY NIGHT NOTES FOR PATIENT:)
     Dates: start: 20180611
  3. UREA. [Concomitant]
     Active Substance: UREA
     Indication: DRY SKIN
     Dosage: PRN (USE WHEN REQUIRED FOR DRY ITCHY SKIN)
     Dates: start: 20180530
  4. BETNOVATE [Concomitant]
     Active Substance: BETAMETHASONE
     Dosage: UNK UNK, PRN
     Dates: start: 20180503
  5. PRIADEL                            /00033702/ [Concomitant]
     Active Substance: LITHIUM CARBONATE
     Dosage: (THREE  EVERY NIGHT)
     Dates: start: 20180416
  6. SERTRALINE [Concomitant]
     Active Substance: SERTRALINE HYDROCHLORIDE
     Dosage: 1 DOSAGE FORM, QD(1 TABLET ONCE A DAY )
     Dates: start: 20180611
  7. UREA. [Concomitant]
     Active Substance: UREA
     Indication: PRURITUS
  8. SERTRALINE [Concomitant]
     Active Substance: SERTRALINE HYDROCHLORIDE
     Dosage: QD (1 EVERY MORNING IN ADDITION TO 100MG TABLET)
     Dates: start: 20180611
  9. FEXOFENADINE [Suspect]
     Active Substance: FEXOFENADINE HYDROCHLORIDE
     Indication: CHRONIC ACTINIC DERMATITIS
     Dosage: UNK
     Dates: start: 20180530, end: 20180610
  10. BETNOVATE [Concomitant]
     Active Substance: BETAMETHASONE
     Dosage: UNK, QD (APPLY A THIN LAYER DAILY FOR UP TO 7 DAYS)
     Dates: start: 20180524
  11. AZATHIOPRINE. [Concomitant]
     Active Substance: AZATHIOPRINE
     Dosage: UNK UNK, QID (4 EVERY DAY)
     Dates: start: 20180611

REACTIONS (3)
  - Swollen tongue [Unknown]
  - Epiglottitis [Unknown]
  - Oedema [Recovering/Resolving]

NARRATIVE: CASE EVENT DATE: 20180601
